FAERS Safety Report 5232958-5 (Version None)
Quarter: 2007Q1

REPORT INFORMATION
  Report Type: 
  Country: None (occurrence: None)
  Receive Date: 20061201
  Receipt Date: 20060920
  Transmission Date: 20070707
  Serious: No
  Sender: FDA-Public Use
  Company Number: 2006PV021606

PATIENT
  Age: 42 Year
  Sex: Female
  Weight: 99.5645 kg

DRUGS (6)
  1. BYETTA [Suspect]
     Indication: DIABETES MELLITUS NON-INSULIN-DEPENDENT
     Dosage: 5 MCG;BID;SC
     Route: 058
     Dates: start: 20060918
  2. GLUCOPHAGE [Concomitant]
  3. LANTUS [Concomitant]
  4. DIOVAN [Concomitant]
  5. TRICOR [Concomitant]
  6. ACTOS /USA/ [Concomitant]

REACTIONS (3)
  - BLOOD GLUCOSE INCREASED [None]
  - DECREASED APPETITE [None]
  - ERUCTATION [None]
